FAERS Safety Report 5897190-0 (Version None)
Quarter: 2008Q3

REPORT INFORMATION
  Report Type: 
  Country: None (occurrence: None)
  Receive Date: 20080923
  Receipt Date: 20080908
  Transmission Date: 20090109
  Serious: Yes (Other)
  Sender: FDA-Public Use
  Company Number: DSU-2008-01416

PATIENT
  Age: 84 Year
  Sex: Female
  Weight: 55.3388 kg

DRUGS (7)
  1. BENICAR [Suspect]
     Indication: HYPERTENSION
     Dosage: PER ORAL
     Route: 048
  2. CELEBREX [Suspect]
     Indication: POST PROCEDURAL SWELLING
     Dosage: 200 MG (200 MG, QD)
     Dates: start: 20080829, end: 20080905
  3. HYDROCHLOROTHIAZIDE [Suspect]
     Indication: HYPERTENSION
  4. VICODIN (PARACETAMOL, HYDROCODONE BITARTRATE) (PARACETAMOL, HYDROCODON [Concomitant]
  5. PRILOSEC (OMEPRAZOLE) (OMEPRAZOLE) [Concomitant]
  6. SINGULAIR (MONTELUKAST) (MONTELUKAST) [Concomitant]
  7. MULTI-VITAMINS [Concomitant]

REACTIONS (4)
  - BLOOD PRESSURE INCREASED [None]
  - DRUG INTERACTION [None]
  - KNEE OPERATION [None]
  - POST PROCEDURAL SWELLING [None]
